FAERS Safety Report 9299951 (Version 1)
Quarter: 2013Q1

REPORT INFORMATION
  Report Type: Spontaneous
  Country: US (occurrence: None)
  Receive Date: 20121231
  Receipt Date: 20121231
  Transmission Date: 20140127
  Serious: Yes (Hospitalization, Other)
  Sender: FDA-Public Use
  Company Number: RB-45956-2012

PATIENT
  Sex: Male

DRUGS (6)
  1. SUBUTEX [Suspect]
     Indication: DRUG DEPENDENCE
     Dosage: TRANSMAMMARY
     Route: 064
     Dates: start: 20120530, end: 20120921
  2. SUBOXONE [Suspect]
     Route: 064
     Dates: start: 20120107, end: 20120530
  3. VYVANSE [Suspect]
     Indication: ATTENTION DEFICIT/HYPERACTIVITY DISORDER
     Dosage: TRANSMAMMARY
     Route: 064
  4. VYVANSE [Suspect]
     Dosage: TRANSMAMMARY
     Route: 064
  5. PRENATAL VITAMINS [Suspect]
     Indication: PRODUCT USED FOR UNKNOWN INDICATION
     Route: 048
     Dates: start: 20120406, end: 20121020
  6. NICOTINE [Suspect]
     Dates: end: 20120303

REACTIONS (3)
  - Maternal exposure during pregnancy [None]
  - Drug withdrawal syndrome neonatal [None]
  - Exposure during breast feeding [None]
